FAERS Safety Report 5090187-2 (Version None)
Quarter: 2006Q3

REPORT INFORMATION
  Report Type: 
  Country: None (occurrence: None)
  Receive Date: 20060828
  Receipt Date: 20060824
  Transmission Date: 20061208
  Serious: Yes (Other)
  Sender: FDA-Public Use
  Company Number: US-GLAXOSMITHKLINE-A0617983A

PATIENT
  Sex: Female

DRUGS (3)
  1. WELLBUTRIN [Suspect]
     Indication: DEPRESSION
     Dosage: 150MG PER DAY
     Route: 048
  2. XANAX [Concomitant]
  3. RITALIN [Concomitant]

REACTIONS (5)
  - FATIGUE [None]
  - MIGRAINE [None]
  - PHARYNGEAL OEDEMA [None]
  - SUICIDAL IDEATION [None]
  - YELLOW SKIN [None]
